FAERS Safety Report 9368532 (Version 2)
Quarter: 2013Q4

REPORT INFORMATION
  Report Type: Spontaneous
  Country: US (occurrence: US)
  Receive Date: 20130625
  Receipt Date: 20131022
  Transmission Date: 20140711
  Serious: Yes (Other)
  Sender: FDA-Public Use
  Company Number: US-BRISTOL-MYERS SQUIBB COMPANY-19019249

PATIENT
  Age: 76 Year
  Sex: Male

DRUGS (6)
  1. ELIQUIS [Suspect]
     Indication: ATRIAL FIBRILLATION
     Dosage: ONGOING
     Route: 048
     Dates: start: 20130416
  2. LISINOPRIL [Suspect]
     Indication: HYPERTENSION
     Route: 048
  3. ASPIRIN [Concomitant]
  4. LORAZEPAM [Concomitant]
  5. DIOVAN [Concomitant]
  6. GLIPIZIDE [Concomitant]

REACTIONS (1)
  - Angioedema [Recovered/Resolved]
